FAERS Safety Report 13321560 (Version 4)
Quarter: 2017Q1

REPORT INFORMATION
  Report Type: Spontaneous
  Country: JP (occurrence: JP)
  Receive Date: 20170310
  Receipt Date: 20170329
  Transmission Date: 20170428
  Serious: Yes (Other)
  Sender: FDA-Public Use
  Company Number: JP-009507513-1703JPN000626J

PATIENT
  Age: 93 Year
  Sex: Female
  Weight: 32 kg

DRUGS (9)
  1. MAGMITT [Concomitant]
     Active Substance: MAGNESIUM OXIDE
     Dosage: 330 MG, BID
     Route: 048
  2. STROMECTOL [Suspect]
     Active Substance: IVERMECTIN
     Dosage: 9 MG, QD
     Route: 048
     Dates: start: 20170311, end: 20170311
  3. STROMECTOL [Suspect]
     Active Substance: IVERMECTIN
     Indication: PROPHYLAXIS
     Dosage: 9 MG, QD
     Route: 048
     Dates: start: 20170304, end: 20170304
  4. PREDONINE [Concomitant]
     Active Substance: PREDNISOLONE
     Dosage: 2.5 MG, QD
     Route: 048
  5. LANSOPRAZOLE. [Concomitant]
     Active Substance: LANSOPRAZOLE
     Dosage: 15 MG, QD
     Route: 048
     Dates: start: 20170215
  6. SENNOSIDES. [Concomitant]
     Active Substance: SENNOSIDES
     Dosage: 24 MG, QD
     Route: 048
  7. ZOLPIDEM TARTRATE. [Concomitant]
     Active Substance: ZOLPIDEM TARTRATE
     Dosage: 5 MG, PRN
     Route: 048
     Dates: start: 20170301, end: 20170305
  8. FERROMIA [Concomitant]
     Active Substance: FERROUS CITRATE
     Dosage: 50 MG, QD
     Route: 048
     Dates: start: 20170215
  9. ETIZOLAM [Concomitant]
     Active Substance: ETIZOLAM
     Dosage: 0.5 MG, PRN
     Route: 048

REACTIONS (3)
  - Altered state of consciousness [Recovered/Resolved]
  - Off label use [Unknown]
  - Transient ischaemic attack [Recovered/Resolved]

NARRATIVE: CASE EVENT DATE: 20170307
